FAERS Safety Report 18599954 (Version 1)
Quarter: 2020Q4

REPORT INFORMATION
  Report Type: Spontaneous
  Country: US (occurrence: US)
  Receive Date: 20201210
  Receipt Date: 20201210
  Transmission Date: 20210114
  Serious: No
  Sender: FDA-Public Use
  Company Number: US-ASTRAZENECA-2020SF56201

PATIENT
  Age: 23833 Day
  Sex: Male
  Weight: 74.8 kg

DRUGS (1)
  1. BYDUREON BCISE [Suspect]
     Active Substance: EXENATIDE
     Indication: GLYCOSYLATED HAEMOGLOBIN INCREASED
     Route: 058
     Dates: start: 202003

REACTIONS (5)
  - Injection site nodule [Unknown]
  - Device delivery system issue [Unknown]
  - Injection site pain [Unknown]
  - Device leakage [Unknown]
  - Injection site haemorrhage [Not Recovered/Not Resolved]

NARRATIVE: CASE EVENT DATE: 202003
